FAERS Safety Report 7260994-6 (Version None)
Quarter: 2011Q1

REPORT INFORMATION
  Report Type: 
  Country: None (occurrence: None)
  Receive Date: 20110130
  Receipt Date: 20101123
  Transmission Date: 20110831
  Serious: No
  Sender: FDA-Public Use
  Company Number: US-ABBOTT-10P-163-0687432-00

PATIENT
  Sex: Female
  Weight: 68.1 kg

DRUGS (3)
  1. HUMIRA [Suspect]
     Indication: RHEUMATOID ARTHRITIS
     Dates: start: 20060101, end: 20090101
  2. HUMIRA [Suspect]
     Dates: start: 20090101
  3. FOSAMAX [Suspect]
     Indication: OSTEOARTHRITIS
     Dates: end: 20100101

REACTIONS (1)
  - METRORRHAGIA [None]
